FAERS Safety Report 8196223-9 (Version None)
Quarter: 2012Q1

REPORT INFORMATION
  Report Type: 
  Country: None (occurrence: None)
  Receive Date: 20120309
  Receipt Date: 20120301
  Transmission Date: 20120608
  Serious: Yes (Life-Threatening)
  Sender: FDA-Public Use
  Company Number: IT-TEVA-326247ISR

PATIENT
  Sex: Female

DRUGS (2)
  1. AVASTIN [Suspect]
     Indication: IMMUNOMODULATORY THERAPY
     Dosage: 300 MILLIGRAM;
     Route: 042
     Dates: start: 20120221, end: 20120221
  2. OXALIPLATIN [Suspect]
     Indication: COLON CANCER
     Dosage: 180 MILLIGRAM;
     Route: 042
     Dates: start: 20120221, end: 20120221

REACTIONS (4)
  - DYSPNOEA [None]
  - ACUTE MYOCARDIAL INFARCTION [None]
  - THROAT TIGHTNESS [None]
  - HYPERTENSION [None]
